FAERS Safety Report 9249827 (Version 1)
Quarter: 2013Q2

REPORT INFORMATION
  Report Type: Report from Study
  Country: MX (occurrence: MX)
  Receive Date: 20130423
  Receipt Date: 20130423
  Transmission Date: 20140414
  Serious: Yes (Hospitalization, Other)
  Sender: FDA-Public Use
  Company Number: PHHY2013MX038156

PATIENT
  Age: 83 Year
  Sex: Female

DRUGS (4)
  1. ONBREZ [Suspect]
     Indication: CHRONIC OBSTRUCTIVE PULMONARY DISEASE
     Dosage: 150 UG, BID
     Dates: start: 20120111, end: 201303
  2. MIFLONIDE [Suspect]
  3. SERETIDE [Concomitant]
     Indication: RESPIRATORY DISORDER
     Dosage: UNK
     Dates: start: 201303
  4. ISODINE [Concomitant]

REACTIONS (2)
  - Bronchopneumonia [Recovered/Resolved]
  - Incorrect dose administered [Unknown]
